FAERS Safety Report 9412770 (Version 1)
Quarter: 2013Q3

REPORT INFORMATION
  Report Type: Report from Study
  Country: CA (occurrence: CA)
  Receive Date: 20130722
  Receipt Date: 20130722
  Transmission Date: 20140515
  Serious: Yes (Hospitalization)
  Sender: FDA-Public Use
  Company Number: PHHY2013CA077760

PATIENT
  Age: 70 Year
  Sex: Female

DRUGS (3)
  1. ACLASTA [Suspect]
     Indication: OSTEOPOROSIS
     Dosage: UNK
     Route: 042
     Dates: start: 20100804
  2. ACLASTA [Suspect]
     Dosage: UNK
     Route: 042
     Dates: start: 20110810
  3. ACLASTA [Suspect]
     Dosage: UNK
     Route: 042
     Dates: start: 20120815

REACTIONS (3)
  - Pancreatitis [Unknown]
  - Bone loss [Unknown]
  - Inflammation [Unknown]
